FAERS Safety Report 6929095-8 (Version None)
Quarter: 2010Q3

REPORT INFORMATION
  Report Type: 
  Country: None (occurrence: None)
  Receive Date: 20100811
  Receipt Date: 20100803
  Transmission Date: 20110219
  Serious: Yes (Congenital Anomaly)
  Sender: FDA-Public Use
  Company Number: 2010MA001401

PATIENT

DRUGS (6)
  1. BETAMETHASONE VALERATE [Suspect]
     Indication: DERMATITIS
     Dosage: 100 ML;TRPL
     Route: 064
     Dates: start: 20100415
  2. CITALOPRAM HYDROBROMIDE [Suspect]
     Indication: ANXIETY
     Dosage: 20 MG;TRPL
     Route: 064
     Dates: start: 20090923
  3. DIAZEPAM [Suspect]
     Indication: ANXIETY
     Dosage: 5 MG;TRPL
     Route: 064
     Dates: start: 20090827
  4. TRAZODONE HCL [Suspect]
     Indication: ANXIETY
     Dosage: 100 MG;TRPL
     Route: 064
     Dates: start: 20090828, end: 20091101
  5. CON MEDS [Concomitant]
  6. PREV MEDS [Concomitant]

REACTIONS (2)
  - CLEFT PALATE [None]
  - MATERNAL DRUGS AFFECTING FOETUS [None]
